FAERS Safety Report 10304488 (Version 1)
Quarter: 2014Q3

REPORT INFORMATION
  Report Type: Other
  Country: JP (occurrence: JP)
  Receive Date: 20140715
  Receipt Date: 20140715
  Transmission Date: 20150326
  Serious: Yes (Hospitalization)
  Sender: FDA-Public Use
  Company Number: JP-ACTELION-A-CH2014-101745

PATIENT
  Age: 56 Year
  Sex: Male

DRUGS (5)
  1. OXYGEN. [Concomitant]
     Active Substance: OXYGEN
  2. SILDENAFIL [Concomitant]
     Active Substance: SILDENAFIL
  3. TRACLEER [Suspect]
     Active Substance: BOSENTAN\BOSENTAN MONOHYDRATE
     Indication: PULMONARY HYPERTENSION
     Route: 048
  4. WARFARIN [Concomitant]
     Active Substance: WARFARIN
  5. BERAPROST [Concomitant]
     Active Substance: BERAPROST

REACTIONS (7)
  - Concomitant disease aggravated [Recovered/Resolved]
  - Pulmonary oedema [Recovered/Resolved]
  - Cardiac failure chronic [Recovered/Resolved]
  - Weight increased [Recovered/Resolved]
  - Oedema [Recovered/Resolved]
  - General physical health deterioration [Recovered/Resolved]
  - Angioplasty [Recovered/Resolved]
